FAERS Safety Report 22905981 (Version 5)
Quarter: 2024Q4

REPORT INFORMATION
  Report Type: Spontaneous
  Country: FR (occurrence: FR)
  Receive Date: 20230905
  Receipt Date: 20241111
  Transmission Date: 20250115
  Serious: Yes (Hospitalization, Disabling, Other)
  Sender: BAYER HEALTHCARE PHARMACEUTICALS INC.
  Company Number: FR-BAYER-2023A050267

PATIENT
  Age: 46 Year
  Sex: Female

DRUGS (21)
  1. CYPROTERONE ACETATE [Suspect]
     Active Substance: CYPROTERONE ACETATE
     Indication: Contraception
     Dosage: 50 MG, BID
     Dates: start: 20050104, end: 20060619
  2. CYPROTERONE ACETATE [Suspect]
     Active Substance: CYPROTERONE ACETATE
     Indication: Acne
     Dosage: 50 UNK
     Dates: start: 20070717, end: 20080123
  3. CYPROTERONE ACETATE [Suspect]
     Active Substance: CYPROTERONE ACETATE
     Indication: Alopecia
     Dosage: 50 UNK
     Dates: start: 20111104, end: 20120110
  4. CYPROTERONE ACETATE [Suspect]
     Active Substance: CYPROTERONE ACETATE
     Indication: Contraception
     Dosage: 50 UNK
     Dates: start: 20140512, end: 20140918
  5. CYPROTERONE ACETATE [Suspect]
     Active Substance: CYPROTERONE ACETATE
     Indication: Contraception
     Dosage: 50 UNK
     Dates: start: 20150604, end: 20150824
  6. CYPROTERONE ACETATE [Suspect]
     Active Substance: CYPROTERONE ACETATE
     Indication: Contraception
     Dosage: 100 MG, QD
     Dates: start: 20171109, end: 20171123
  7. CYPROTERONE ACETATE [Suspect]
     Active Substance: CYPROTERONE ACETATE
     Indication: Contraception
     Dosage: 100 MG, QD
     Route: 065
     Dates: start: 20050104, end: 20060619
  8. CYPROTERONE ACETATE [Suspect]
     Active Substance: CYPROTERONE ACETATE
     Indication: Contraception
     Dosage: 50 MG
     Dates: start: 201405, end: 201506
  9. CYPROTERONE ACETATE [Suspect]
     Active Substance: CYPROTERONE ACETATE
     Indication: Alopecia
     Dosage: 100 MG, QD
     Route: 048
     Dates: start: 20050104, end: 20060619
  10. CYPROTERONE ACETATE [Suspect]
     Active Substance: CYPROTERONE ACETATE
     Indication: Acne
     Dosage: 100 MG, QD
     Route: 048
     Dates: start: 20070717, end: 20080123
  11. CYPROTERONE ACETATE [Suspect]
     Active Substance: CYPROTERONE ACETATE
     Indication: Contraception
     Dosage: 100 MG, QD
     Route: 048
     Dates: start: 20111104, end: 20120110
  12. CYPROTERONE ACETATE [Suspect]
     Active Substance: CYPROTERONE ACETATE
     Indication: Alopecia
     Dosage: 100 MG, QD
     Route: 048
     Dates: start: 20140512, end: 20140908
  13. CYPROTERONE ACETATE [Suspect]
     Active Substance: CYPROTERONE ACETATE
     Indication: Alopecia
     Dosage: 25 MG, QD
     Route: 048
     Dates: start: 20150604, end: 20150704
  14. MIRENA [Suspect]
     Active Substance: LEVONORGESTREL
     Dosage: 20?G/DAY
     Route: 015
     Dates: start: 20150119, end: 20150306
  15. ESTROGENS [Concomitant]
     Active Substance: ESTROGENS
     Indication: Contraception
     Dosage: UNK
     Dates: start: 20050104, end: 20171123
  16. ESTROGENS [Concomitant]
     Active Substance: ESTROGENS
     Indication: Acne
  17. CEPHALORIDINE [Concomitant]
     Active Substance: CEPHALORIDINE
     Dosage: UNK
     Dates: start: 20080123
  18. NOVA T 380 [Concomitant]
     Dosage: UNK
     Dates: start: 20120110, end: 20140110
  19. DROSPIRENONE [Concomitant]
     Active Substance: DROSPIRENONE
     Dosage: UNK
     Dates: start: 20070313
  20. ACETAMINOPHEN [Concomitant]
     Active Substance: ACETAMINOPHEN
     Indication: Headache
     Dosage: 500 MG
  21. ZOLPIDEM TARTRATE [Concomitant]
     Active Substance: ZOLPIDEM TARTRATE

REACTIONS (8)
  - Meningioma [Recovered/Resolved]
  - Blindness unilateral [Not Recovered/Not Resolved]
  - Headache [Not Recovered/Not Resolved]
  - Balance disorder [None]
  - Granuloma [None]
  - Discomfort [None]
  - Procedural pain [Not Recovered/Not Resolved]
  - Off label use [None]

NARRATIVE: CASE EVENT DATE: 20160101
